FAERS Safety Report 15082733 (Version 1)
Quarter: 2018Q2

REPORT INFORMATION
  Report Type: Spontaneous
  Country: US (occurrence: US)
  Receive Date: 20180607
  Receipt Date: 20180607
  Transmission Date: 20180711
  Serious: No
  Sender: FDA-Public Use
  Company Number: None

PATIENT
  Age: 77 Year
  Sex: Female

DRUGS (4)
  1. NIFEDIPINE 30MG [Concomitant]
  2. ATENOLOL 25MG [Concomitant]
     Active Substance: ATENOLOL
  3. LISINOPRIL. [Concomitant]
     Active Substance: LISINOPRIL
  4. LORAZEPAM. [Suspect]
     Active Substance: LORAZEPAM
     Route: 048

REACTIONS (5)
  - Hypoaesthesia [None]
  - Paraesthesia [None]
  - Hypoaesthesia oral [None]
  - Hypersensitivity [None]
  - Swollen tongue [None]

NARRATIVE: CASE EVENT DATE: 20180529
